FAERS Safety Report 8814390 (Version 1)
Quarter: 2012Q4

REPORT INFORMATION
  Report Type: Spontaneous
  Country: AU (occurrence: None)
  Receive Date: 20120925
  Receipt Date: 20120925
  Transmission Date: 20130627
  Serious: Yes (Other)
  Sender: FDA-Public Use
  Company Number: 1414907

PATIENT
  Age: 67 Year
  Sex: Female
  Weight: 84 kg

DRUGS (4)
  1. GEMCITABINE HYDROCHLORIDE [Suspect]
     Indication: LUNG CANCER
     Route: 042
     Dates: start: 20120821, end: 20120828
  2. GRANISETRON [Concomitant]
  3. DEXAMETHASONE [Concomitant]
  4. METOCLOPRAMIDE [Concomitant]

REACTIONS (2)
  - Oedema peripheral [None]
  - Thrombophlebitis superficial [None]
